FAERS Safety Report 21328801 (Version 1)
Quarter: 2022Q3

REPORT INFORMATION
  Report Type: Spontaneous
  Country: SA (occurrence: None)
  Receive Date: 20220913
  Receipt Date: 20220913
  Transmission Date: 20221027
  Serious: Yes (Hospitalization)
  Sender: FDA-Public Use
  Company Number: SA-INFO-20220059

PATIENT
  Age: 74 Year
  Sex: Female

DRUGS (16)
  1. METRONIDAZOLE [Suspect]
     Active Substance: METRONIDAZOLE
  2. ACETAMINOPHEN [Concomitant]
     Active Substance: ACETAMINOPHEN
     Indication: Pain
     Dosage: AS NEEDED FOR PAIN ()
  3. ASPIRIN [Concomitant]
     Active Substance: ASPIRIN
  4. ATORVASTATIN [Concomitant]
     Active Substance: ATORVASTATIN
  5. CARBIDOPA\LEVODOPA [Concomitant]
     Active Substance: CARBIDOPA\LEVODOPA
     Dosage: 25-100 TWICE DAILY ()
  6. LAMOTRIGINE [Concomitant]
     Active Substance: LAMOTRIGINE
  7. HYDROCHLOROTHIAZIDE\LOSARTAN [Concomitant]
     Active Substance: HYDROCHLOROTHIAZIDE\LOSARTAN
     Dosage: 50/12.5MG ()
  8. MIRALAX [Concomitant]
     Active Substance: POLYETHYLENE GLYCOL 3350
     Indication: Constipation
     Dosage: AS NEEDED ()
  9. PIPERACILLIN SODIUM\TAZOBACTAM SODIUM [Concomitant]
     Active Substance: PIPERACILLIN SODIUM\TAZOBACTAM SODIUM
     Route: 040
  10. MIRTAZAPINE [Concomitant]
     Active Substance: MIRTAZAPINE
  11. OMEPRAZOLE [Concomitant]
     Active Substance: OMEPRAZOLE
  12. RISPERIDONE [Concomitant]
     Active Substance: RISPERIDONE
     Dosage: AT BEDTIME
  13. VALPROATE SODIUM [Concomitant]
     Active Substance: VALPROATE SODIUM
  14. ZOLPIDEM [Concomitant]
     Active Substance: ZOLPIDEM TARTRATE
     Dosage: AT BEDTIME
  15. CEFUROXIME [Concomitant]
     Active Substance: CEFUROXIME
  16. MIXTARD HUMAN 70/30 [Concomitant]
     Active Substance: INSULIN HUMAN
     Dosage: ()

REACTIONS (2)
  - Mania [Recovered/Resolved]
  - Condition aggravated [Recovered/Resolved]
